FAERS Safety Report 7488296-3 (Version None)
Quarter: 2011Q2

REPORT INFORMATION
  Report Type: 
  Country: None (occurrence: None)
  Receive Date: 20110511
  Receipt Date: 20110503
  Transmission Date: 20111010
  Serious: Yes (Other)
  Sender: FDA-Public Use
  Company Number: 11-000514

PATIENT
  Age: 84 Year
  Sex: Female
  Weight: 78.9 kg

DRUGS (12)
  1. COQ10 (UBIDECARENONE) [Concomitant]
  2. VITAMIN D [Concomitant]
  3. DICLOFENAC SODIUM [Concomitant]
  4. METROGEL [Concomitant]
  5. LOVASTATIN [Concomitant]
  6. GLIPIZIDE [Concomitant]
  7. LYSINE (LYSINE) [Concomitant]
  8. DIURETICS [Concomitant]
  9. PRESERVISION LUTEIN EYE VITA+MIN.SUP.SOFTG. (ASCORBIC ACID, CUPRIC OXI [Concomitant]
  10. METFORMIN (METFORMIN) [Concomitant]
  11. ESTRACE [Suspect]
     Indication: MEDICAL DEVICE REMOVAL
     Dosage: 1 DOSE, VAGINAL ; 1 G, AT HOUR OF SLEEP, VAGINAL
     Route: 067
     Dates: start: 20030101, end: 20030101
  12. ESTRACE [Suspect]
     Indication: MEDICAL DEVICE REMOVAL
     Dosage: 1 DOSE, VAGINAL ; 1 G, AT HOUR OF SLEEP, VAGINAL
     Route: 067
     Dates: start: 20110502

REACTIONS (5)
  - MEDICATION ERROR [None]
  - VAGINAL HAEMORRHAGE [None]
  - SKIN CANCER [None]
  - INCORRECT DOSE ADMINISTERED [None]
  - BREAST CANCER [None]
